FAERS Safety Report 24550026 (Version 1)
Quarter: 2024Q4

REPORT INFORMATION
  Report Type: Spontaneous
  Country: US (occurrence: None)
  Receive Date: 20241024
  Receipt Date: 20241024
  Transmission Date: 20250114
  Serious: Yes (Death, Life-Threatening, Hospitalization)
  Sender: Public
  Company Number: None

PATIENT
  Age: 71 Year
  Sex: Female
  Weight: 91.1 kg

DRUGS (1)
  1. JEMPERLI [Suspect]
     Active Substance: DOSTARLIMAB\DOSTARLIMAB-GXLY
     Indication: Endometrial cancer
     Route: 042
     Dates: start: 20240829, end: 20241015

REACTIONS (11)
  - Ophthalmoplegia [None]
  - Eyelid ptosis [None]
  - Troponin abnormal [None]
  - Ejection fraction decreased [None]
  - Bundle branch block [None]
  - Myocarditis [None]
  - Myositis [None]
  - Muscular weakness [None]
  - Ventricular tachycardia [None]
  - Cardiogenic shock [None]
  - Unresponsive to stimuli [None]

NARRATIVE: CASE EVENT DATE: 20241015
